FAERS Safety Report 11927200 (Version 1)
Quarter: 2016Q1

REPORT INFORMATION
  Report Type: Spontaneous
  Country: US (occurrence: US)
  Receive Date: 20160119
  Receipt Date: 20160119
  Transmission Date: 20160526
  Serious: Yes (Hospitalization)
  Sender: FDA-Public Use
  Company Number: US-MYLANLABS-2016M1002412

PATIENT

DRUGS (6)
  1. HYALURONIC ACID [Suspect]
     Active Substance: HYALURONIC ACID
     Dosage: 1 DF, BID
     Dates: start: 2015
  2. METOPROLOL. [Suspect]
     Active Substance: METOPROLOL
     Dosage: 50 MG, BID
     Dates: start: 20150829, end: 20150906
  3. METOPROLOL. [Suspect]
     Active Substance: METOPROLOL
     Dosage: UNK, QD
     Dates: start: 20150907, end: 20150907
  4. METOPROLOL. [Suspect]
     Active Substance: METOPROLOL
     Dosage: 25 MG, BID
     Dates: start: 20150908, end: 2015
  5. HYALURONIC ACID [Suspect]
     Active Substance: HYALURONIC ACID
     Indication: SUPPLEMENTATION THERAPY
     Dosage: 1 DF, QD
     Route: 048
     Dates: start: 20150531
  6. DILTIAZEM [Concomitant]
     Active Substance: DILTIAZEM
     Dosage: UNK
     Route: 065

REACTIONS (7)
  - Adverse event [Recovered/Resolved]
  - Stress [Unknown]
  - Dizziness [Unknown]
  - Fatigue [Unknown]
  - Unevaluable event [Unknown]
  - Dyspnoea [Unknown]
  - Heart rate increased [Unknown]

NARRATIVE: CASE EVENT DATE: 2015
